FAERS Safety Report 7740215-8 (Version None)
Quarter: 2011Q3

REPORT INFORMATION
  Report Type: 
  Country: None (occurrence: None)
  Receive Date: 20110909
  Receipt Date: 20110909
  Transmission Date: 20111222
  Serious: Yes (Other)
  Sender: FDA-Public Use
  Company Number: None

PATIENT
  Age: 48 Year
  Sex: Male
  Weight: 105.23 kg

DRUGS (1)
  1. CRESTOR [Suspect]
     Indication: BLOOD CHOLESTEROL INCREASED
     Dosage: 20MG
     Route: 048
     Dates: start: 20050401, end: 20110720

REACTIONS (9)
  - SLEEP APNOEA SYNDROME [None]
  - MUSCLE ATROPHY [None]
  - ARTHROPATHY [None]
  - JOINT LOCK [None]
  - MUSCULAR WEAKNESS [None]
  - MYALGIA [None]
  - MUSCLE RIGIDITY [None]
  - MUSCLE SPASMS [None]
  - IMMOBILE [None]
